FAERS Safety Report 16760704 (Version 1)
Quarter: 2019Q3

REPORT INFORMATION
  Report Type: Spontaneous
  Country: JP (occurrence: JP)
  Receive Date: 20190830
  Receipt Date: 20190830
  Transmission Date: 20191005
  Serious: Yes (Hospitalization)
  Sender: FDA-Public Use
  Company Number: JP-JNJFOC-20190803616

PATIENT
  Age: 85 Year
  Sex: Female

DRUGS (23)
  1. SALAZOSULFAPYRIDINE [Concomitant]
     Active Substance: SULFASALAZINE
     Indication: INTERSTITIAL LUNG DISEASE
     Dosage: ENTERIC COATED DRUG
     Route: 048
  2. TEPRENONE [Concomitant]
     Active Substance: TEPRENONE
     Route: 048
  3. RENIVACE [Concomitant]
     Active Substance: ENALAPRIL
     Route: 048
  4. BUCILLAMINE [Concomitant]
     Active Substance: BUCILLAMINE
     Indication: INTERSTITIAL LUNG DISEASE
     Route: 048
  5. PREDONINE [Concomitant]
     Active Substance: PREDNISOLONE
     Indication: INTERSTITIAL LUNG DISEASE
     Route: 048
  6. FEBURIC [Concomitant]
     Active Substance: FEBUXOSTAT
     Route: 048
  7. RIMATIL [Concomitant]
     Active Substance: BUCILLAMINE
     Route: 048
  8. COCARL [Concomitant]
     Active Substance: ACETAMINOPHEN
     Route: 048
  9. LIMAPROST ALFADEX [Concomitant]
     Active Substance: LIMAPROST
     Route: 048
  10. MONTELUKAST [Concomitant]
     Active Substance: MONTELUKAST SODIUM
     Route: 048
  11. SIMPONI [Suspect]
     Active Substance: GOLIMUMAB
     Indication: RHEUMATOID ARTHRITIS
     Route: 058
     Dates: start: 20190709, end: 20190709
  12. ZOSYN [Concomitant]
     Active Substance: PIPERACILLIN SODIUM\TAZOBACTAM SODIUM
     Indication: INTERSTITIAL LUNG DISEASE
     Route: 041
     Dates: start: 2019
  13. BENIDIPINE HYDROCHLORIDE [Concomitant]
     Active Substance: BENIDIPINE HYDROCHLORIDE
     Route: 048
  14. SODIUM RABEPRAZOLE [Concomitant]
     Active Substance: RABEPRAZOLE SODIUM
     Indication: INTERSTITIAL LUNG DISEASE
     Route: 048
  15. CALFINA [Concomitant]
     Active Substance: ALFACALCIDOL
     Route: 048
  16. PROGRAF [Concomitant]
     Active Substance: TACROLIMUS\TACROLIMUS ANHYDROUS
     Route: 048
  17. VALSARTAN. [Concomitant]
     Active Substance: VALSARTAN
     Route: 048
  18. GENINAX [Concomitant]
     Active Substance: GARENOXACIN MESYLATE
     Indication: INTERSTITIAL LUNG DISEASE
     Route: 048
     Dates: start: 20190619
  19. FUROSEMIDE. [Concomitant]
     Active Substance: FUROSEMIDE
     Indication: HYPERTENSION
     Route: 048
  20. DAIPHEN [Concomitant]
     Active Substance: SULFAMETHOXAZOLE\TRIMETHOPRIM
     Route: 048
  21. ULTRACET [Concomitant]
     Active Substance: ACETAMINOPHEN\TRAMADOL HYDROCHLORIDE
     Route: 048
  22. FERROUS SULFATE. [Concomitant]
     Active Substance: FERROUS SULFATE
     Route: 048
  23. TACROLIMUS MONOHYDRATE [Concomitant]
     Active Substance: TACROLIMUS
     Route: 065
     Dates: start: 2019

REACTIONS (1)
  - Dehydration [Unknown]

NARRATIVE: CASE EVENT DATE: 20190805
